FAERS Safety Report 8516663-5 (Version None)
Quarter: 2012Q3

REPORT INFORMATION
  Report Type: 
  Country: None (occurrence: None)
  Receive Date: 20120718
  Receipt Date: 20120712
  Transmission Date: 20120928
  Serious: Yes (Death, Other)
  Sender: FDA-Public Use
  Company Number: GB-JNJFOC-20120707490

PATIENT

DRUGS (3)
  1. ITRACONAZOLE [Suspect]
     Indication: ANTI-INFECTIVE THERAPY
     Route: 065
  2. CLOFAZIMINE [Suspect]
     Indication: ANTI-INFECTIVE THERAPY
     Route: 065
  3. LOMEFLOXACIN [Suspect]
     Indication: ANTI-INFECTIVE THERAPY
     Route: 065

REACTIONS (3)
  - SUDDEN CARDIAC DEATH [None]
  - VENTRICULAR ARRHYTHMIA [None]
  - TORSADE DE POINTES [None]
